FAERS Safety Report 9507545 (Version 1)
Quarter: 2013Q3

REPORT INFORMATION
  Report Type: Spontaneous
  Country: US (occurrence: None)
  Receive Date: 20130906
  Receipt Date: 20130906
  Transmission Date: 20140515
  Serious: Yes (Hospitalization, Disabling)
  Sender: FDA-Public Use
  Company Number: None

PATIENT
  Age: 72 Year
  Sex: Male
  Weight: 95.26 kg

DRUGS (1)
  1. LEVAQUIN [Suspect]

REACTIONS (3)
  - Tendon rupture [None]
  - Bedridden [None]
  - Renal disorder [None]
